FAERS Safety Report 5153659-8 (Version None)
Quarter: 2006Q4

REPORT INFORMATION
  Report Type: 
  Country: None (occurrence: None)
  Receive Date: 20061114
  Receipt Date: 20061106
  Transmission Date: 20070319
  Serious: Yes (Hospitalization, Other)
  Sender: FDA-Public Use
  Company Number: GXKR2006GB07128

PATIENT
  Age: 34 Year
  Sex: Female

DRUGS (2)
  1. MIRTAZAPINE [Suspect]
     Dosage: 1.68 G, ORAL
     Route: 048
  2. ETHANOL (ETHANOL) [Concomitant]

REACTIONS (4)
  - DRUG INEFFECTIVE [None]
  - INTENTIONAL OVERDOSE [None]
  - MIOSIS [None]
  - SOMNOLENCE [None]
